FAERS Safety Report 5884106 (Version 22)
Quarter: 2019Q3

REPORT INFORMATION
  Report Type: Report from Study
  Country: US (occurrence: US)
  Receive Date: 20050923
  Receipt Date: 20190924
  Transmission Date: 20191005
  Serious: Yes (Hospitalization)
  Sender: FDA-Public Use
  Company Number: PHHO2005US14386

PATIENT
  Age: 29 Year
  Sex: Female
  Weight: 65.1 kg

DRUGS (22)
  1. DESFERAL [Suspect]
     Active Substance: DEFEROXAMINE MESYLATE
     Dosage: 2200 MG DAILY
     Route: 058
     Dates: end: 20051022
  2. EXJADE [Suspect]
     Active Substance: DEFERASIROX
     Dosage: 1250 MG, QD
     Route: 048
     Dates: start: 20060601, end: 20060915
  3. EXJADE [Suspect]
     Active Substance: DEFERASIROX
     Dosage: NO TREATMENT
     Dates: start: 20060524, end: 20060531
  4. ZOFRAN [Concomitant]
     Active Substance: ONDANSETRON HYDROCHLORIDE
     Indication: NAUSEA
     Route: 065
  5. ORAMORPH [Concomitant]
     Active Substance: MORPHINE SULFATE
     Indication: PRODUCT USED FOR UNKNOWN INDICATION
     Route: 065
  6. DESFERAL [Suspect]
     Active Substance: DEFEROXAMINE MESYLATE
     Dosage: NO TREATMENT
     Dates: start: 20051216
  7. EXJADE [Suspect]
     Active Substance: DEFERASIROX
     Dosage: 1375 MG, QD
     Route: 048
     Dates: end: 20070421
  8. VITAMIN D [Concomitant]
     Active Substance: VITAMIN D NOS
     Indication: PRODUCT USED FOR UNKNOWN INDICATION
     Route: 065
  9. EXJADE [Suspect]
     Active Substance: DEFERASIROX
     Indication: BLOOD IRON INCREASED
     Dosage: 1250 MG, QD
     Route: 048
     Dates: start: 20051216, end: 20060523
  10. CALCIUM [Concomitant]
     Active Substance: CALCIUM
     Indication: PRODUCT USED FOR UNKNOWN INDICATION
     Route: 065
  11. DESFERAL [Suspect]
     Active Substance: DEFEROXAMINE MESYLATE
     Indication: BLOOD IRON INCREASED
     Dosage: 2200 MG, QD
     Route: 058
     Dates: start: 20050902, end: 20050907
  12. DESFERAL [Suspect]
     Active Substance: DEFEROXAMINE MESYLATE
     Dosage: NO TREATMENT
  13. EXJADE [Suspect]
     Active Substance: DEFERASIROX
     Dosage: 1250 MG, QD
     Route: 048
  14. EXJADE [Suspect]
     Active Substance: DEFERASIROX
     Dosage: 1375 MG, QD
     Dates: end: 20070616
  15. DESFERAL [Suspect]
     Active Substance: DEFEROXAMINE MESYLATE
     Dosage: UNK
     Dates: start: 20051111, end: 20051215
  16. EXJADE [Suspect]
     Active Substance: DEFERASIROX
     Dosage: NO TREATMENT
  17. EXJADE [Suspect]
     Active Substance: DEFERASIROX
     Dosage: NO TREATMENT
     Dates: start: 20070617
  18. NEXIUM [Concomitant]
     Active Substance: ESOMEPRAZOLE MAGNESIUM
     Indication: DYSPEPSIA
     Route: 065
  19. CORTEF [Concomitant]
     Active Substance: HYDROCORTISONE
     Indication: ADDISON^S DISEASE
     Route: 065
  20. FOLIC ACID. [Concomitant]
     Active Substance: FOLIC ACID
     Indication: SICKLE CELL DISEASE
     Route: 065
  21. CALCITONIN [Concomitant]
     Active Substance: CALCITONIN
     Indication: PRODUCT USED FOR UNKNOWN INDICATION
     Route: 065
  22. BENADRYL [Concomitant]
     Active Substance: DIPHENHYDRAMINE HYDROCHLORIDE
     Indication: PRODUCT USED FOR UNKNOWN INDICATION
     Route: 065

REACTIONS (35)
  - Constipation [Recovering/Resolving]
  - Addison^s disease [Recovered/Resolved]
  - Vulvovaginal mycotic infection [Recovered/Resolved]
  - Pneumonia aspiration [Recovered/Resolved]
  - Pain in extremity [Recovered/Resolved]
  - Mental status changes [Recovered/Resolved]
  - Dizziness [Recovered/Resolved]
  - Loss of consciousness [Recovered/Resolved]
  - Pain [Recovered/Resolved]
  - Musculoskeletal pain [Recovered/Resolved]
  - Concomitant disease progression [Unknown]
  - Chest pain [Recovered/Resolved]
  - Cellulitis [Recovered/Resolved]
  - Sickle cell anaemia with crisis [Recovered/Resolved]
  - Back pain [Recovered/Resolved]
  - Myalgia [Recovered/Resolved]
  - Arthralgia [Recovered/Resolved]
  - Abdominal pain [Recovered/Resolved]
  - Escherichia urinary tract infection [Recovered/Resolved]
  - Gastroenteritis viral [Recovered/Resolved]
  - Headache [Recovering/Resolving]
  - Cough [Recovered/Resolved]
  - Dyspnoea [Recovered/Resolved]
  - Lung consolidation [Recovered/Resolved]
  - Injection site pain [Recovered/Resolved]
  - Injection site erythema [Recovered/Resolved]
  - Injection site warmth [Recovered/Resolved]
  - Pneumonia [Recovered/Resolved]
  - Pyrexia [Recovered/Resolved]
  - Nausea [Recovered/Resolved]
  - Vulvovaginal pruritus [Recovered/Resolved]
  - Oxygen saturation decreased [Recovered/Resolved]
  - Diarrhoea [Recovered/Resolved]
  - Vomiting [Recovering/Resolving]
  - Dehydration [Recovered/Resolved]

NARRATIVE: CASE EVENT DATE: 20050903
